FAERS Safety Report 14818741 (Version 2)
Quarter: 2018Q2

REPORT INFORMATION
  Report Type: Spontaneous
  Country: BR (occurrence: BR)
  Receive Date: 20180427
  Receipt Date: 20180524
  Transmission Date: 20180711
  Serious: Yes (Other)
  Sender: FDA-Public Use
  Company Number: BR-AMGEN-BRASP2018053472

PATIENT
  Age: 43 Year
  Sex: Male

DRUGS (1)
  1. ENBREL [Suspect]
     Active Substance: ETANERCEPT
     Indication: PSORIATIC ARTHROPATHY
     Dosage: 50 MG, WEEKLY (ONE APPLICATION PER WEEK)
     Route: 058
     Dates: start: 201802, end: 2018

REACTIONS (7)
  - Drug ineffective [Not Recovered/Not Resolved]
  - Injection site haematoma [Unknown]
  - Peripheral swelling [Not Recovered/Not Resolved]
  - Asthenia [Unknown]
  - Injection site erythema [Unknown]
  - Mobility decreased [Not Recovered/Not Resolved]
  - Malabsorption from injection site [Unknown]

NARRATIVE: CASE EVENT DATE: 2018
